FAERS Safety Report 9306624 (Version 1)
Quarter: 2013Q2

REPORT INFORMATION
  Report Type: Spontaneous
  Country: US (occurrence: US)
  Receive Date: 20130523
  Receipt Date: 20130523
  Transmission Date: 20140414
  Serious: No
  Sender: FDA-Public Use
  Company Number: US-PFIZER INC-2013153897

PATIENT
  Age: 74 Year
  Sex: Male

DRUGS (2)
  1. ZITHROMAX [Suspect]
     Indication: MUSCULOSKELETAL PAIN
     Dosage: UNK
  2. ZITHROMAX [Suspect]
     Indication: CHEST PAIN

REACTIONS (1)
  - Drug ineffective for unapproved indication [Unknown]
